FAERS Safety Report 14165257 (Version 1)
Quarter: 2017Q4

REPORT INFORMATION
  Report Type: Spontaneous
  Country: US (occurrence: US)
  Receive Date: 20171106
  Receipt Date: 20171106
  Transmission Date: 20180321
  Serious: Yes (Disabling, Other)
  Sender: FDA-Public Use
  Company Number: None

PATIENT
  Age: 50 Year
  Sex: Female
  Weight: 62.1 kg

DRUGS (19)
  1. KETOFIN [Concomitant]
  2. DIAZEPAM. [Concomitant]
     Active Substance: DIAZEPAM
  3. D [Concomitant]
  4. SYNTHROID [Suspect]
     Active Substance: LEVOTHYROXINE SODIUM
     Indication: TRI-IODOTHYRONINE DECREASED
     Dosage: ?          QUANTITY:1 TABLET(S);?
     Route: 048
     Dates: start: 20171003, end: 20171105
  5. ZOLPIDEM [Concomitant]
     Active Substance: ZOLPIDEM\ZOLPIDEM TARTRATE
  6. CALCIUM [Concomitant]
     Active Substance: CALCIUM
  7. MSM [Concomitant]
     Active Substance: DIMETHYL SULFONE
  8. AZELASTINE. [Concomitant]
     Active Substance: AZELASTINE HYDROCHLORIDE
  9. MULTI-V [Concomitant]
  10. C [Concomitant]
  11. SYNTHROID [Suspect]
     Active Substance: LEVOTHYROXINE SODIUM
     Indication: THYROXINE DECREASED
     Dosage: ?          QUANTITY:1 TABLET(S);?
     Route: 048
     Dates: start: 20171003, end: 20171105
  12. SEROQUEL XR [Concomitant]
     Active Substance: QUETIAPINE FUMARATE
  13. ZINC. [Concomitant]
     Active Substance: ZINC
  14. TRAZODONE [Suspect]
     Active Substance: TRAZODONE HYDROCHLORIDE
  15. BIOTIN [Concomitant]
     Active Substance: BIOTIN
  16. K [Concomitant]
  17. CHROMIUM [Concomitant]
     Active Substance: CHROMIC CHLORIDE\CHROMIUM
  18. NASALCROM [Concomitant]
     Active Substance: CROMOLYN SODIUM
  19. VITAMIN B COMPLEX [Concomitant]
     Active Substance: CYANOCOBALAMIN\DEXPANTHENOL\NIACINAMIDE\PYRIDOXINE HYDROCHLORIDE\RIBOFLAVIN 5^-PHOSPHATE SODIUM\THIAMINE HYDROCHLORIDE\VITAMIN B COMPLEX

REACTIONS (1)
  - Hypomania [None]

NARRATIVE: CASE EVENT DATE: 20171101
